FAERS Safety Report 4312021-8 (Version None)
Quarter: 2004Q1

REPORT INFORMATION
  Report Type: 
  Country: None (occurrence: None)
  Receive Date: 20040303
  Receipt Date: 20040225
  Transmission Date: 20041129
  Serious: Yes (Hospitalization)
  Sender: FDA-Public Use
  Company Number: 200410046BFR

PATIENT
  Age: 65 Year
  Sex: Male

DRUGS (3)
  1. GLUCOR (ACARBOSE) [Suspect]
     Indication: DIABETES MELLITUS
     Dosage: 100 MG, TID, ORAL
     Route: 048
     Dates: start: 20030701, end: 20040119
  2. GLUCOPHAGE [Concomitant]
  3. DIAMICRON [Concomitant]

REACTIONS (1)
  - THROMBOCYTOPENIA [None]
